FAERS Safety Report 17308902 (Version 1)
Quarter: 2020Q1

REPORT INFORMATION
  Report Type: Spontaneous
  Country: US (occurrence: US)
  Receive Date: 20200123
  Receipt Date: 20200123
  Transmission Date: 20200409
  Serious: No
  Sender: FDA-Public Use
  Company Number: US-TOLMAR, INC.-20US019883

PATIENT
  Age: 67 Year
  Sex: Male

DRUGS (1)
  1. ATRIDOX [Suspect]
     Active Substance: DOXYCYCLINE HYCLATE
     Indication: DENTAL CARE
     Dosage: UNK
     Route: 065
     Dates: start: 20191127, end: 20191127

REACTIONS (4)
  - Gingival injury [Recovered/Resolved]
  - Product physical issue [Recovered/Resolved]
  - Gingival discomfort [Recovered/Resolved]
  - Gingival erythema [Recovered/Resolved]

NARRATIVE: CASE EVENT DATE: 20191218
